FAERS Safety Report 5780248-4 (Version None)
Quarter: 2008Q2

REPORT INFORMATION
  Report Type: 
  Country: None (occurrence: None)
  Receive Date: 20080620
  Receipt Date: 20080612
  Transmission Date: 20081010
  Serious: Yes (Other)
  Sender: FDA-Public Use
  Company Number: PHHY2008MX10907

PATIENT
  Age: 29 Year
  Sex: Female

DRUGS (2)
  1. TEGRETOL [Suspect]
     Indication: HYPERTENSION
     Dosage: 5.5 TABLETS
     Route: 048
     Dates: start: 20080101, end: 20080601
  2. TEGRETOL [Suspect]
     Indication: EPILEPSY

REACTIONS (2)
  - HORMONE LEVEL ABNORMAL [None]
  - MENSTRUAL DISORDER [None]
